FAERS Safety Report 4966073-2 (Version None)
Quarter: 2006Q2

REPORT INFORMATION
  Report Type: 
  Country: None (occurrence: None)
  Receive Date: 20060403
  Receipt Date: 20060320
  Transmission Date: 20061013
  Serious: Yes (Death)
  Sender: FDA-Public Use
  Company Number: 2006039425

PATIENT
  Age: 24 Year
  Sex: Male

DRUGS (2)
  1. ZELDOX (CAPSULES) (ZIPRASIDONE) [Suspect]
     Indication: SCHIZOAFFECTIVE DISORDER
     Dosage: 160 MG, ORAL
     Route: 048
  2. VALPROIC ACID [Concomitant]

REACTIONS (1)
  - DEATH [None]
